FAERS Safety Report 19083595 (Version 1)
Quarter: 2021Q2

REPORT INFORMATION
  Report Type: Spontaneous
  Country: FR (occurrence: FR)
  Receive Date: 20210401
  Receipt Date: 20210401
  Transmission Date: 20210717
  Serious: Yes (Hospitalization)
  Sender: FDA-Public Use
  Company Number: FR-TEVA-2021-FR-1896306

PATIENT
  Age: 32 Year
  Sex: Female
  Weight: 45.8 kg

DRUGS (17)
  1. AMLOR 10 MG, GELULE [Concomitant]
     Active Substance: AMLODIPINE BESYLATE
     Route: 048
  2. MONOPROST [Concomitant]
     Active Substance: LATANOPROST
     Route: 047
  3. OXYCODONE [Concomitant]
     Active Substance: OXYCODONE
     Route: 048
  4. TEMESTA 2,5 MG, COMPRIME SECABLE [Concomitant]
     Active Substance: LORAZEPAM
     Dosage: SCORED TABLET
     Route: 048
  5. PARACETAMOL [Concomitant]
     Active Substance: ACETAMINOPHEN
     Route: 048
  6. PREDNISONE. [Suspect]
     Active Substance: PREDNISONE
     Indication: POLYCHONDRITIS
     Dosage: 60 MG
     Route: 048
     Dates: start: 20201204
  7. KARDEGIC [Concomitant]
     Active Substance: ASPIRIN DL-LYSINE
     Route: 048
  8. ACUPAN [Concomitant]
     Active Substance: NEFOPAM HYDROCHLORIDE
     Route: 048
  9. OXYNORMORO [Concomitant]
     Active Substance: OXYCODONE HYDROCHLORIDE
     Route: 048
  10. PRAXILENE 200 MG, COMPRIME PELLICULE [Concomitant]
     Active Substance: NAFRONYL OXALATE
     Route: 048
  11. OLANZAPINE. [Concomitant]
     Active Substance: OLANZAPINE
     Route: 048
  12. MOVICOL [Concomitant]
     Active Substance: POLYETHYLENE GLYCOL 3350\POTASSIUM CHLORIDE\SODIUM BICARBONATE\SODIUM CHLORIDE
     Route: 048
  13. IMUREL 50 MG, COMPRIME PELLICULE [Concomitant]
     Active Substance: AZATHIOPRINE
     Route: 048
  14. RISPERDAL [Concomitant]
     Active Substance: RISPERIDONE
     Route: 048
  15. METHYLPREDNISOLONE. [Suspect]
     Active Substance: METHYLPREDNISOLONE
     Indication: POLYCHONDRITIS
     Dosage: 120 MG
     Route: 042
     Dates: start: 20201208, end: 20201211
  16. PREDNISONE. [Concomitant]
     Active Substance: PREDNISONE
     Indication: POLYCHONDRITIS
     Route: 048
  17. PANTOPRAZOLE [Concomitant]
     Active Substance: PANTOPRAZOLE
     Route: 048

REACTIONS (2)
  - Psychiatric decompensation [Not Recovered/Not Resolved]
  - Mania [Not Recovered/Not Resolved]

NARRATIVE: CASE EVENT DATE: 20201219
